FAERS Safety Report 21037838 (Version 2)
Quarter: 2022Q4

REPORT INFORMATION
  Report Type: Spontaneous
  Country: US (occurrence: None)
  Receive Date: 20220704
  Receipt Date: 20221209
  Transmission Date: 20230112
  Serious: No
  Sender: FDA-Public Use
  Company Number: US-Inventia-000189

PATIENT
  Sex: Female

DRUGS (1)
  1. TELMISARTAN [Suspect]
     Active Substance: TELMISARTAN
     Indication: Blood pressure measurement
     Dosage: 80 MG ONCE A DAY
     Route: 048

REACTIONS (2)
  - Drug ineffective [Unknown]
  - Product dispensing error [Unknown]
